FAERS Safety Report 7560715-3 (Version None)
Quarter: 2011Q2

REPORT INFORMATION
  Report Type: 
  Country: None (occurrence: None)
  Receive Date: 20110621
  Receipt Date: 20110616
  Transmission Date: 20111010
  Serious: No
  Sender: FDA-Public Use
  Company Number: US-PFIZER INC-2011132814

PATIENT
  Sex: Female
  Weight: 49 kg

DRUGS (1)
  1. CLEOCIN HYDROCHLORIDE [Suspect]
     Indication: VAGINITIS BACTERIAL
     Dosage: UNK
     Route: 067
     Dates: start: 20110615

REACTIONS (1)
  - BURNING SENSATION [None]
